FAERS Safety Report 8005968-2 (Version None)
Quarter: 2011Q4

REPORT INFORMATION
  Report Type: 
  Country: None (occurrence: None)
  Receive Date: 20111223
  Receipt Date: 20111214
  Transmission Date: 20120403
  Serious: Yes (Hospitalization)
  Sender: FDA-Public Use
  Company Number: US-ASTRAZENECA-2011SE75716

PATIENT
  Age: 89 Year
  Sex: Male
  Weight: 64.4 kg

DRUGS (2)
  1. SYMBICORT [Suspect]
     Indication: CHRONIC OBSTRUCTIVE PULMONARY DISEASE
     Dosage: 1 PUFF TWO TIMES A DAY
     Route: 055
  2. HEART MEDICINE [Concomitant]

REACTIONS (3)
  - PNEUMONIA [None]
  - DYSPHONIA [None]
  - LARYNGITIS [None]
